FAERS Safety Report 7155408-0 (Version None)
Quarter: 2010Q4

REPORT INFORMATION
  Report Type: 
  Country: None (occurrence: None)
  Receive Date: 20101214
  Receipt Date: 20101206
  Transmission Date: 20110411
  Serious: No
  Sender: FDA-Public Use
  Company Number: US-BIOGENIDEC-2010BI042357

PATIENT
  Sex: Female

DRUGS (3)
  1. TYSABRI [Suspect]
     Indication: MULTIPLE SCLEROSIS
     Route: 042
     Dates: start: 20101118
  2. AVONEX [Concomitant]
     Indication: MULTIPLE SCLEROSIS
     Route: 030
     Dates: start: 20060301
  3. AVONEX [Concomitant]
     Route: 030

REACTIONS (11)
  - CHILLS [None]
  - COUGH [None]
  - FLUSHING [None]
  - MULTIPLE SCLEROSIS RELAPSE [None]
  - NAUSEA [None]
  - NECK PAIN [None]
  - PAIN IN EXTREMITY [None]
  - PRURITUS [None]
  - SENSATION OF HEAVINESS [None]
  - URINE ODOUR ABNORMAL [None]
  - VERTIGO [None]
